FAERS Safety Report 16935047 (Version 2)
Quarter: 2019Q4

REPORT INFORMATION
  Report Type: Spontaneous
  Country: US (occurrence: US)
  Receive Date: 20191018
  Receipt Date: 20191125
  Transmission Date: 20200122
  Serious: Yes (Other)
  Sender: FDA-Public Use
  Company Number: US-PFIZER INC-2019448532

PATIENT
  Age: 68 Year
  Sex: Male

DRUGS (1)
  1. METHOTREXATE SODIUM. [Suspect]
     Active Substance: METHOTREXATE SODIUM
     Indication: PSORIATIC ARTHROPATHY
     Dosage: UNK UNK, WEEKLY(25 MG/ML, WEEKLY (25MG/ ML PRESERVATIVE-FREE SOLUTION; 1 CC INJECT QWK. (EVERY WEEK)
     Dates: start: 20130507

REACTIONS (2)
  - Thrombocytopenia [Unknown]
  - Psoriatic arthropathy [Unknown]
